FAERS Safety Report 8419494-X (Version None)
Quarter: 2012Q2

REPORT INFORMATION
  Report Type: 
  Country: None (occurrence: None)
  Receive Date: 20120607
  Receipt Date: 20120529
  Transmission Date: 20120825
  Serious: Yes (Other)
  Sender: FDA-Public Use
  Company Number: US-ASTRAZENECA-2012SE28939

PATIENT
  Age: 51 Year
  Sex: Female

DRUGS (4)
  1. VALIUM [Concomitant]
  2. PRILOSEC [Suspect]
     Dosage: GENERIC
     Route: 048
     Dates: start: 20120101
  3. NEXIUM [Suspect]
     Route: 048
     Dates: start: 20050101
  4. PRILOSEC [Suspect]
     Route: 048

REACTIONS (14)
  - ANGINA PECTORIS [None]
  - CHEST PAIN [None]
  - LIVER DISORDER [None]
  - OROPHARYNGEAL DISCOMFORT [None]
  - ADVERSE EVENT [None]
  - DIARRHOEA [None]
  - NASOPHARYNGITIS [None]
  - GASTRIC POLYPS [None]
  - PSORIATIC ARTHROPATHY [None]
  - GASTROOESOPHAGEAL REFLUX DISEASE [None]
  - ABDOMINAL DISCOMFORT [None]
  - DRUG INEFFECTIVE [None]
  - INTENTIONAL DRUG MISUSE [None]
  - ABDOMINAL PAIN UPPER [None]
